FAERS Safety Report 11816382 (Version 3)
Quarter: 2019Q3

REPORT INFORMATION
  Report Type: Spontaneous
  Country: FR (occurrence: FR)
  Receive Date: 20151209
  Receipt Date: 20190724
  Transmission Date: 20191004
  Serious: Yes (Hospitalization)
  Sender: FDA-Public Use
  Company Number: FR-MYLANLABS-2015M1043203

PATIENT
  Sex: Male

DRUGS (46)
  1. OXYCONTIN [Concomitant]
     Active Substance: OXYCODONE HYDROCHLORIDE
     Dosage: UNK
     Dates: start: 20150925, end: 20151028
  2. DEXAMETHASONE SODIUM PHOSPHATE. [Suspect]
     Active Substance: DEXAMETHASONE SODIUM PHOSPHATE
     Indication: PLASMA CELL MYELOMA
     Dosage: 40 MILLIGRAM, QD (40 MG, ONCE DAILY (QD) )
     Route: 048
     Dates: start: 20151002, end: 20151013
  3. THALIDOMIDE CELGENE [Suspect]
     Active Substance: THALIDOMIDE
     Indication: PLASMA CELL MYELOMA
     Dosage: 50 MILLIGRAM, BID
     Route: 048
     Dates: start: 20151002, end: 20151028
  4. THALIDOMIDE CELGENE [Suspect]
     Active Substance: THALIDOMIDE
     Dosage: 50 MILLIGRAM, BID
     Route: 048
     Dates: start: 20151002, end: 20151013
  5. ORACILLINE                         /00001801/ [Suspect]
     Active Substance: PENICILLIN V
     Indication: OPPORTUNISTIC INFECTION PROPHYLAXIS
     Dosage: 1 MILLION IU, BID
     Route: 048
     Dates: start: 20151001, end: 20151023
  6. LEDERFOLINE [Suspect]
     Active Substance: LEUCOVORIN CALCIUM
     Indication: THROMBOSIS PROPHYLAXIS
     Dosage: 25 MILLIGRAM, QW (25 MG, WEEKLY (QW))
     Route: 048
     Dates: start: 20151001, end: 20151013
  7. OXYCONTIN [Concomitant]
     Active Substance: OXYCODONE HYDROCHLORIDE
     Indication: PRODUCT USED FOR UNKNOWN INDICATION
     Dosage: 2000000 INTERNATIONAL UNIT
     Dates: start: 20150925
  8. SERESTA [Concomitant]
     Active Substance: OXAZEPAM
     Indication: PRODUCT USED FOR UNKNOWN INDICATION
     Dosage: UNK
     Dates: start: 20150928, end: 20151103
  9. ATARAX [Concomitant]
     Active Substance: HYDROXYZINE HYDROCHLORIDE
     Indication: PRODUCT USED FOR UNKNOWN INDICATION
     Dosage: UNK
     Dates: start: 20151030, end: 20151103
  10. ATACAND [Concomitant]
     Active Substance: CANDESARTAN CILEXETIL
     Dosage: UNK
     Dates: start: 20150925
  11. VELCADE [Suspect]
     Active Substance: BORTEZOMIB
     Dosage: 1.3 MILLIGRAM/SQ. METER, QD
     Route: 042
     Dates: start: 20151007, end: 20151013
  12. THALIDOMIDE CELGENE [Suspect]
     Active Substance: THALIDOMIDE
     Dosage: 100 MILLIGRAM, QD (50 MG, 2X/DAY (BID))
     Route: 048
     Dates: start: 20151002, end: 20151028
  13. ORACILLINE                         /00001801/ [Suspect]
     Active Substance: PENICILLIN V
     Dosage: 1000000 INTERNATIONAL UNIT, QD
     Route: 048
     Dates: start: 20151001, end: 20151023
  14. INNOHEP [Suspect]
     Active Substance: TINZAPARIN SODIUM
     Indication: THROMBOSIS PROPHYLAXIS
     Dosage: 4500 INTERNATIONAL UNIT, QD (4500 U, ONCE DAILY (QD)) (10000 IU/0.5ML
     Route: 058
     Dates: start: 20151001, end: 20151028
  15. OXYNORMORO [Concomitant]
     Active Substance: OXYCODONE HYDROCHLORIDE
     Indication: PRODUCT USED FOR UNKNOWN INDICATION
     Dosage: 500 MILLIGRAM
     Dates: start: 20150925, end: 20151028
  16. OXYCONTIN [Concomitant]
     Active Substance: OXYCODONE HYDROCHLORIDE
     Dosage: UNK
     Dates: start: 20150925
  17. NORMACOL [Concomitant]
     Active Substance: HERBALS\KARAYA GUM
     Indication: PRODUCT USED FOR UNKNOWN INDICATION
     Dosage: UNK
     Dates: start: 20151005, end: 20151005
  18. DEXAMETHASONE. [Suspect]
     Active Substance: DEXAMETHASONE
     Indication: PLASMA CELL MYELOMA
     Dosage: 40 MILLIGRAM, QD (40 MG, ONCE DAILY (QD)) (20 MG/5ML STRENGTH)
     Route: 042
     Dates: start: 20151002, end: 20151013
  19. VELCADE [Suspect]
     Active Substance: BORTEZOMIB
     Indication: PLASMA CELL MYELOMA
     Dosage: 1.3 MILLIGRAM/SQ. METER, QD
     Route: 042
     Dates: start: 20151002, end: 20151013
  20. SULFAMETHOXAZOLE W/TRIMETHOPRIM [Suspect]
     Active Substance: SULFAMETHOXAZOLE\TRIMETHOPRIM
     Indication: OPPORTUNISTIC INFECTION PROPHYLAXIS
     Dosage: 800 MILLIGRAM, QW
     Route: 048
     Dates: start: 20151001, end: 20151028
  21. PRIMPERAN [Concomitant]
     Active Substance: METOCLOPRAMIDE HYDROCHLORIDE
     Indication: PRODUCT USED FOR UNKNOWN INDICATION
     Dosage: 40 MILLIGRAM
     Dates: start: 20151005, end: 20151028
  22. DIFFU K [Concomitant]
     Active Substance: POTASSIUM CHLORIDE
     Indication: PRODUCT USED FOR UNKNOWN INDICATION
     Dosage: 3.571 MILLIGRAM
     Dates: start: 20150930
  23. UVEDOSE [Concomitant]
     Active Substance: CHOLECALCIFEROL
     Dosage: UNK
     Dates: start: 20151102, end: 20151102
  24. UVEDOSE [Concomitant]
     Active Substance: CHOLECALCIFEROL
     Dosage: UNK
     Dates: start: 20150925, end: 201509
  25. VELCADE [Suspect]
     Active Substance: BORTEZOMIB
     Dosage: UNK (3.5MG)
     Route: 042
     Dates: start: 20151002, end: 20151013
  26. DOLIPRANE [Concomitant]
     Active Substance: ACETAMINOPHEN
     Indication: PRODUCT USED FOR UNKNOWN INDICATION
     Dosage: UNK
     Dates: start: 20150925
  27. INEXIUM                            /01479302/ [Concomitant]
     Active Substance: ESOMEPRAZOLE MAGNESIUM
     Indication: PRODUCT USED FOR UNKNOWN INDICATION
     Dosage: UNK
     Dates: start: 20150930, end: 20151103
  28. ATACAND [Concomitant]
     Active Substance: CANDESARTAN CILEXETIL
     Indication: PRODUCT USED FOR UNKNOWN INDICATION
     Dosage: UNK
     Dates: start: 20150925, end: 20150925
  29. SULFAMETHOXAZOLE W/TRIMETHOPRIM [Suspect]
     Active Substance: SULFAMETHOXAZOLE\TRIMETHOPRIM
     Dosage: 800 MILLIGRAM, 3XW
     Route: 048
     Dates: start: 20151001, end: 20151028
  30. MOVICOL                            /08437601/ [Concomitant]
     Indication: PRODUCT USED FOR UNKNOWN INDICATION
     Dosage: 4500 INTERNATIONAL UNIT
     Dates: start: 20150930
  31. UVEDOSE [Concomitant]
     Active Substance: CHOLECALCIFEROL
     Dosage: UNK
     Dates: start: 20150929, end: 20151013
  32. LOVENOX [Concomitant]
     Active Substance: ENOXAPARIN SODIUM
     Indication: PRODUCT USED FOR UNKNOWN INDICATION
     Dosage: UNK
     Dates: start: 20150925, end: 20151001
  33. LOVENOX [Concomitant]
     Active Substance: ENOXAPARIN SODIUM
     Dosage: UNK
     Dates: start: 20151030
  34. ACUPAN [Concomitant]
     Active Substance: NEFOPAM HYDROCHLORIDE
     Indication: PRODUCT USED FOR UNKNOWN INDICATION
     Dosage: UNK
     Dates: start: 20150925, end: 20150925
  35. ORACILLINE                         /00001801/ [Suspect]
     Active Substance: PENICILLIN V
     Dosage: UNK
     Route: 048
     Dates: start: 20151001, end: 20151023
  36. MOVICOL                            /08437601/ [Concomitant]
     Dosage: UNK
     Dates: start: 20150930
  37. DIFFU K [Concomitant]
     Active Substance: POTASSIUM CHLORIDE
     Dosage: UNK
     Dates: start: 20150930
  38. LOXEN                              /00639802/ [Concomitant]
     Active Substance: NICARDIPINE HYDROCHLORIDE
     Indication: PRODUCT USED FOR UNKNOWN INDICATION
     Dosage: UNK
     Dates: start: 20150925
  39. DEXERYL                            /01579901/ [Concomitant]
     Active Substance: GLYCERIN\MINERAL OIL\PETROLATUM
     Indication: PRODUCT USED FOR UNKNOWN INDICATION
     Dosage: UNK
     Dates: start: 20151030
  40. ZELITREX [Suspect]
     Active Substance: VALACYCLOVIR HYDROCHLORIDE
     Indication: OPPORTUNISTIC INFECTION PROPHYLAXIS
     Dosage: 500 MILLIGRAM, QD (500 MG, ONCE DAILY (QD))
     Route: 048
     Dates: start: 20151001, end: 20151028
  41. CALCIUM + VITAMIN D3 [Concomitant]
     Active Substance: CALCIUM CARBONATE\CHOLECALCIFEROL
     Indication: PRODUCT USED FOR UNKNOWN INDICATION
     Dosage: UNK
     Dates: start: 20151013, end: 20151103
  42. UVEDOSE [Concomitant]
     Active Substance: CHOLECALCIFEROL
     Indication: PRODUCT USED FOR UNKNOWN INDICATION
     Dosage: UNK
     Dates: start: 20150925, end: 20150925
  43. ZOPICLONE [Concomitant]
     Active Substance: ZOPICLONE
     Indication: PRODUCT USED FOR UNKNOWN INDICATION
     Dosage: UNK
     Dates: start: 20151008, end: 20151009
  44. NORMACOL [Concomitant]
     Active Substance: HERBALS\KARAYA GUM
     Dosage: UNK
     Dates: start: 20151005
  45. ACUPAN [Concomitant]
     Active Substance: NEFOPAM HYDROCHLORIDE
     Dosage: UNK
     Dates: start: 20150925
  46. DERMOVAL                           /00337102/ [Concomitant]
     Active Substance: CLOBETASOL PROPIONATE
     Indication: PRODUCT USED FOR UNKNOWN INDICATION
     Dosage: UNK
     Dates: start: 20151030, end: 20151103

REACTIONS (4)
  - Pruritus [Recovering/Resolving]
  - Orthostatic hypotension [Unknown]
  - Rash maculo-papular [Recovering/Resolving]
  - Dermatitis exfoliative generalised [Recovering/Resolving]

NARRATIVE: CASE EVENT DATE: 201510
